FAERS Safety Report 14239784 (Version 24)
Quarter: 2018Q2

REPORT INFORMATION
  Report Type: Spontaneous
  Country: NO (occurrence: NO)
  Receive Date: 20171130
  Receipt Date: 20180531
  Transmission Date: 20180711
  Serious: Yes (Other)
  Sender: FDA-Public Use
  Company Number: NO-PFIZER INC-2017511286

PATIENT
  Sex: Female

DRUGS (32)
  1. TRAMADOL HCL [Suspect]
     Active Substance: TRAMADOL HYDROCHLORIDE
     Indication: PAIN
  2. MORPHINE SULFATE. [Suspect]
     Active Substance: MORPHINE SULFATE
     Dosage: UNK
  3. FURIX [Suspect]
     Active Substance: FUROSEMIDE
     Dosage: UNK
  4. ZOLPIDEM TARTRATE. [Suspect]
     Active Substance: ZOLPIDEM TARTRATE
     Dosage: UNK
     Route: 048
  5. DULCOLAX NOS [Suspect]
     Active Substance: BISACODYL OR DOCUSATE SODIUM
     Dosage: UNK
     Route: 048
  6. PREDNISOLONE. [Suspect]
     Active Substance: PREDNISOLONE
     Dosage: UNK
  7. AFIPRAN [Suspect]
     Active Substance: METOCLOPRAMIDE HYDROCHLORIDE
     Dosage: UNK
  8. MIDAZOLAM [Suspect]
     Active Substance: MIDAZOLAM HYDROCHLORIDE
     Dosage: UNK
  9. NALOXONE HYDROCHLORIDE. [Suspect]
     Active Substance: NALOXONE HYDROCHLORIDE
     Indication: DRUG ABUSE
     Dosage: UNK
  10. QUETIAPINE. [Concomitant]
     Active Substance: QUETIAPINE
     Dosage: UNK
  11. ONDANSETRON HCL [Suspect]
     Active Substance: ONDANSETRON HYDROCHLORIDE
     Dosage: UNK
  12. ZOFRAN [Suspect]
     Active Substance: ONDANSETRON HYDROCHLORIDE
     Dosage: UNK
  13. ZOPICLONE [Suspect]
     Active Substance: ZOPICLONE
     Dosage: UNK
  14. PINEX FORTE [Suspect]
     Active Substance: ACETAMINOPHEN\CODEINE PHOSPHATE
     Dosage: UNK
  15. BUSCOPAN [Suspect]
     Active Substance: BUTYLSCOPOLAMINE BROMIDE
     Dosage: UNK
  16. ORAMORPH [Suspect]
     Active Substance: MORPHINE SULFATE
     Dosage: UNK
  17. TRAMADOL HCL [Suspect]
     Active Substance: TRAMADOL HYDROCHLORIDE
     Indication: ABDOMINAL PAIN UPPER
     Dosage: UNK
  18. NOZINAN [Suspect]
     Active Substance: LEVOMEPROMAZINE
     Dosage: UNK
  19. METOCLOPRAMIDE. [Suspect]
     Active Substance: METOCLOPRAMIDE
     Dosage: UNK
  20. NALOXONE HCL W/OXYCODONE HCL [Concomitant]
     Active Substance: NALOXONE HYDROCHLORIDE\OXYCODONE HYDROCHLORIDE
  21. STESOLID [Suspect]
     Active Substance: DIAZEPAM
     Dosage: UNK
  22. VALIUM [Suspect]
     Active Substance: DIAZEPAM
     Dosage: UNK
  23. OXYNORM [Suspect]
     Active Substance: OXYCODONE HYDROCHLORIDE
     Dosage: UNK
  24. PANADEINE CO [Suspect]
     Active Substance: ACETAMINOPHEN\CODEINE PHOSPHATE
     Dosage: UNK
  25. KETORAX [Suspect]
     Active Substance: KETOBEMIDONE HYDROCHLORIDE
     Dosage: UNK
  26. TARGINIQ ER [Suspect]
     Active Substance: NALOXONE HYDROCHLORIDE\OXYCODONE HYDROCHLORIDE
     Dosage: UNK
  27. SETOFILM [Suspect]
     Active Substance: ONDANSETRON
     Dosage: UNK
  28. FLUCONAZOLE. [Suspect]
     Active Substance: FLUCONAZOLE
     Dosage: UNK
  29. NEURONTIN [Suspect]
     Active Substance: GABAPENTIN
     Dosage: UNK
  30. SOBRIL [Suspect]
     Active Substance: OXAZEPAM
     Dosage: UNK
  31. SOMAC [Suspect]
     Active Substance: PANTOPRAZOLE SODIUM
     Dosage: UNK
  32. BACLOFEN. [Suspect]
     Active Substance: BACLOFEN
     Dosage: UNK

REACTIONS (3)
  - Drug abuse [Unknown]
  - Drug dependence [Unknown]
  - Drug diversion [Unknown]
